FAERS Safety Report 7131158-1 (Version None)
Quarter: 2010Q4

REPORT INFORMATION
  Report Type: 
  Country: None (occurrence: None)
  Receive Date: 20101201
  Receipt Date: 20101124
  Transmission Date: 20110411
  Serious: Yes (Other)
  Sender: FDA-Public Use
  Company Number: BR-PFIZER INC-2010157636

PATIENT
  Age: 86 Year
  Sex: Female

DRUGS (1)
  1. FRONTAL [Suspect]
     Indication: DEMENTIA ALZHEIMER'S TYPE
     Dosage: 1 MG, 1X/DAY
     Route: 048
     Dates: start: 20100824

REACTIONS (1)
  - DEMENTIA ALZHEIMER'S TYPE [None]
